FAERS Safety Report 9455674 (Version 2)
Quarter: 2013Q3

REPORT INFORMATION
  Report Type: Spontaneous
  Country: JP (occurrence: JP)
  Receive Date: 20130813
  Receipt Date: 20130910
  Transmission Date: 20140515
  Serious: Yes (Other)
  Sender: FDA-Public Use
  Company Number: JP-PFIZER INC-2013230605

PATIENT
  Sex: 0

DRUGS (1)
  1. DIFLUCAN [Suspect]

REACTIONS (2)
  - Pseudomembranous colitis [Unknown]
  - Diarrhoea [Unknown]
